FAERS Safety Report 19083397 (Version 1)
Quarter: 2021Q2

REPORT INFORMATION
  Report Type: Spontaneous
  Country: FR (occurrence: FR)
  Receive Date: 20210401
  Receipt Date: 20210401
  Transmission Date: 20210717
  Serious: Yes (Life-Threatening, Other)
  Sender: FDA-Public Use
  Company Number: FR-GLAXOSMITHKLINE-FR2021071849

PATIENT
  Age: 65 Year
  Sex: Male
  Weight: 81 kg

DRUGS (6)
  1. VENTOLINE [Suspect]
     Active Substance: ALBUTEROL
     Indication: INCREASED BRONCHIAL SECRETION
     Dosage: UNK
     Route: 055
     Dates: start: 20210225, end: 20210227
  2. VELCADE [Concomitant]
     Active Substance: BORTEZOMIB
     Indication: PLASMA CELL MYELOMA
     Dosage: 2.63 MG, CYC
     Route: 058
     Dates: start: 20210219
  3. REVLIMID [Suspect]
     Active Substance: LENALIDOMIDE
     Indication: PLASMA CELL MYELOMA
     Dosage: 25 MG, QD
     Route: 048
     Dates: start: 20210219, end: 20210227
  4. INNOHEP [Concomitant]
     Active Substance: TINZAPARIN SODIUM
     Indication: PULMONARY EMBOLISM
     Dosage: UNK
     Route: 058
     Dates: start: 20210219
  5. DEXAMETHASONE. [Concomitant]
     Active Substance: DEXAMETHASONE
     Indication: CHEMOTHERAPY
     Dosage: 20 MG, CYC
     Route: 048
     Dates: start: 20210219
  6. ATROVENT [Suspect]
     Active Substance: IPRATROPIUM BROMIDE
     Indication: INCREASED BRONCHIAL SECRETION
     Dosage: UNK
     Route: 055
     Dates: start: 20210227, end: 20210227

REACTIONS (1)
  - Myocardial infarction [Recovered/Resolved]

NARRATIVE: CASE EVENT DATE: 20210227
